FAERS Safety Report 20152766 (Version 1)
Quarter: 2021Q4

REPORT INFORMATION
  Report Type: Report from Study
  Country: FR (occurrence: FR)
  Receive Date: 20211206
  Receipt Date: 20211206
  Transmission Date: 20220303
  Serious: Yes (Hospitalization)
  Sender: FDA-Public Use
  Company Number: FR-BRISTOL-MYERS SQUIBB COMPANY-BMS-2021-130269

PATIENT
  Age: 46 Year
  Sex: Male
  Weight: 70 kg

DRUGS (20)
  1. NIVOLUMAB [Suspect]
     Active Substance: NIVOLUMAB
     Indication: Product used for unknown indication
     Dosage: 240 MG, EVERY 15 DAYS, CYCLICAL
     Route: 065
     Dates: start: 201704
  2. AXITINIB [Suspect]
     Active Substance: AXITINIB
     Indication: Metastatic renal cell carcinoma
     Dosage: 6 MILLIGRAM, QD(3 MG, 2X/DAY)
     Route: 065
     Dates: start: 201611, end: 201703
  3. FERROUS SULFATE [Concomitant]
     Active Substance: FERROUS SULFATE
     Indication: Anaemia
     Dosage: UNK
     Route: 065
     Dates: start: 201701
  4. ESOMEPRAZOLE MAGNESIUM [Concomitant]
     Active Substance: ESOMEPRAZOLE MAGNESIUM
     Indication: Gastrooesophageal reflux disease
     Dosage: UNK
     Route: 065
     Dates: start: 201612
  5. KETOPROFEN [Concomitant]
     Active Substance: KETOPROFEN
     Indication: Back pain
     Dosage: UNK
     Route: 065
     Dates: start: 1997
  6. BETAMETHASONE [Concomitant]
     Active Substance: BETAMETHASONE
     Indication: Prophylaxis
     Dosage: UNK
     Route: 065
     Dates: start: 201502
  7. DAFALGAN [Concomitant]
     Active Substance: ACETAMINOPHEN
     Indication: Pain in extremity
     Dosage: UNK
     Route: 065
     Dates: start: 201709
  8. ESCITALOPRAM OXALATE [Concomitant]
     Active Substance: ESCITALOPRAM OXALATE
     Indication: Depression
     Dosage: UNK
     Route: 065
  9. DIETARY SUPPLEMENT [Concomitant]
     Active Substance: DIETARY SUPPLEMENT
     Indication: Prophylaxis
     Dosage: UNK
     Route: 065
     Dates: start: 201709, end: 201710
  10. HYDROCORTISONE [Concomitant]
     Active Substance: HYDROCORTISONE
     Indication: Prophylaxis
     Dosage: UNK
     Route: 065
     Dates: start: 201612
  11. GLYCERIN\MINERAL OIL\PETROLATUM [Concomitant]
     Active Substance: GLYCERIN\MINERAL OIL\PETROLATUM
     Indication: Prophylaxis
     Dosage: UNK
     Route: 065
     Dates: start: 201502
  12. XANAX [Concomitant]
     Active Substance: ALPRAZOLAM
     Indication: Depression
     Dosage: UNK
     Route: 065
     Dates: start: 201512
  13. PRIMPERAN [Concomitant]
     Active Substance: METOCLOPRAMIDE HYDROCHLORIDE
     Indication: Prophylaxis of nausea and vomiting
     Dosage: UNK
     Route: 065
     Dates: start: 201707
  14. KARDEGIC [Concomitant]
     Active Substance: ASPIRIN DL-LYSINE
     Indication: Transient ischaemic attack
     Dosage: UNK
     Route: 065
     Dates: start: 201508
  15. PREDNISOLONE [Concomitant]
     Active Substance: PREDNISOLONE
     Indication: Pain
     Dosage: UNK
     Route: 065
     Dates: start: 201701
  16. PREDNISOLONE [Concomitant]
     Active Substance: PREDNISOLONE
     Indication: Fatigue
     Dosage: UNK
     Route: 065
     Dates: start: 201612
  17. PREDNISOLONE [Concomitant]
     Active Substance: PREDNISOLONE
     Indication: Prophylaxis
     Dosage: UNK
     Route: 065
     Dates: start: 201712, end: 201712
  18. DUPHALAC [Concomitant]
     Active Substance: LACTULOSE
     Indication: Constipation prophylaxis
     Dosage: UNK
     Route: 065
     Dates: start: 201710
  19. XERIAL [Concomitant]
     Indication: Prophylaxis
     Dosage: UNK
     Route: 065
     Dates: start: 201502
  20. BECLOMETHASONE [Concomitant]
     Active Substance: BECLOMETHASONE
     Indication: Laryngeal inflammation
     Dosage: UNK
     Route: 065
     Dates: start: 201612

REACTIONS (3)
  - General physical health deterioration [Recovered/Resolved]
  - Confusional state [Recovered/Resolved]
  - Off label use [Unknown]

NARRATIVE: CASE EVENT DATE: 20180226
